FAERS Safety Report 7880686-X (Version None)
Quarter: 2011Q4

REPORT INFORMATION
  Report Type: 
  Country: None (occurrence: None)
  Receive Date: 20111101
  Receipt Date: 20111031
  Transmission Date: 20120403
  Serious: Yes (Other)
  Sender: FDA-Public Use
  Company Number: US-PFIZER INC-2011266078

PATIENT
  Sex: Female

DRUGS (3)
  1. ROBITUSSIN PEAK COLD COUGH PLUS CHEST CONGESTION DM [Suspect]
     Indication: COUGH
  2. ROBITUSSIN PEAK COLD COUGH PLUS CHEST CONGESTION DM [Suspect]
     Indication: SINUSITIS
     Dosage: UNK, AS NEEDED
     Dates: start: 20111029, end: 20111029
  3. ROBITUSSIN PEAK COLD COUGH PLUS CHEST CONGESTION DM [Suspect]
     Indication: NASOPHARYNGITIS

REACTIONS (3)
  - CHOKING [None]
  - RETCHING [None]
  - EYE HAEMORRHAGE [None]
